FAERS Safety Report 21552670 (Version 1)
Quarter: 2022Q4

REPORT INFORMATION
  Report Type: Spontaneous
  Country: CO (occurrence: CO)
  Receive Date: 20221104
  Receipt Date: 20221104
  Transmission Date: 20230112
  Serious: Yes (Death)
  Sender: FDA-Public Use
  Company Number: CO-ORG100014127-2022000766

PATIENT
  Age: 51 Year
  Sex: Female

DRUGS (3)
  1. LYSODREN [Suspect]
     Active Substance: MITOTANE
     Indication: Adrenocortical carcinoma
     Dosage: 3000 MG EVERY 8 HOURS
     Route: 048
     Dates: start: 20220420, end: 20221006
  2. AMLODIPINE [Concomitant]
     Active Substance: AMLODIPINE BESYLATE
     Indication: Product used for unknown indication
     Dosage: 5 MG EVERY 24 HOURS
     Dates: start: 20220311
  3. Ondansetron 10 mg [Concomitant]
     Indication: Product used for unknown indication
     Dosage: 10 MG EVERY 08 HOURS
     Dates: start: 202206

REACTIONS (3)
  - General physical health deterioration [Fatal]
  - Malignant neoplasm progression [Fatal]
  - Constipation [Recovered/Resolved]

NARRATIVE: CASE EVENT DATE: 20220101
